FAERS Safety Report 19682242 (Version 2)
Quarter: 2022Q3

REPORT INFORMATION
  Report Type: Report from Study
  Country: CA (occurrence: CA)
  Receive Date: 20210811
  Receipt Date: 20220704
  Transmission Date: 20221027
  Serious: Yes (Hospitalization, Other)
  Sender: FDA-Public Use
  Company Number: CA-ABBVIE-21K-028-4019532-00

PATIENT
  Sex: Male

DRUGS (3)
  1. SKYRIZI [Suspect]
     Active Substance: RISANKIZUMAB-RZAA
     Indication: Psoriasis
     Route: 058
     Dates: start: 20201029, end: 2021
  2. SKYRIZI [Suspect]
     Active Substance: RISANKIZUMAB-RZAA
     Route: 058
     Dates: start: 20210604, end: 20220113
  3. COVID-19 VACCINE [Concomitant]
     Indication: COVID-19 prophylaxis
     Route: 030
     Dates: start: 2021, end: 2021

REACTIONS (5)
  - Myiasis [Not Recovered/Not Resolved]
  - Wound infection [Not Recovered/Not Resolved]
  - Hospitalisation [Unknown]
  - Dry skin [Not Recovered/Not Resolved]
  - Psoriasis [Not Recovered/Not Resolved]

NARRATIVE: CASE EVENT DATE: 20210101
